FAERS Safety Report 17070542 (Version 1)
Quarter: 2019Q4

REPORT INFORMATION
  Report Type: Spontaneous
  Country: US (occurrence: US)
  Receive Date: 20191125
  Receipt Date: 20191125
  Transmission Date: 20200122
  Serious: No
  Sender: FDA-Public Use
  Company Number: US-AUROBINDO-AUR-APL-2019-066686

PATIENT
  Age: 80 Year
  Sex: Female
  Weight: 56.6 kg

DRUGS (3)
  1. FLECAINIDE ACETATE. [Suspect]
     Active Substance: FLECAINIDE ACETATE
     Indication: ATRIAL FIBRILLATION
     Dosage: 1.5 DOSAGE FORM, TWO TIMES A DAY
     Dates: start: 20190812
  2. FLECAINIDE ACETATE TABLETS USP 50MG [Suspect]
     Active Substance: FLECAINIDE ACETATE
     Indication: ATRIAL FIBRILLATION
     Dosage: 2 DOSAGE FORM, TWO TIMES A DAY, FOR YEARS
     Route: 048
     Dates: start: 2008
  3. METOPROLOL. [Concomitant]
     Active Substance: METOPROLOL
     Indication: HYPERTENSION
     Dosage: UNK, ONCE DAILY
     Route: 065
     Dates: end: 20190814

REACTIONS (2)
  - Heart rate irregular [Unknown]
  - Drug ineffective [Unknown]
